FAERS Safety Report 5207713-2 (Version None)
Quarter: 2006Q4

REPORT INFORMATION
  Report Type: 
  Country: None (occurrence: None)
  Receive Date: 20061030
  Receipt Date: 20060807
  Transmission Date: 20070319
  Serious: No
  Sender: FDA-Public Use
  Company Number: 2006CT000695

PATIENT
  Age: 40 Year
  Sex: Female
  Weight: 106.5953 kg

DRUGS (9)
  1. VENTAVIS [Suspect]
     Indication: PULMONARY HYPERTENSION
     Dosage: 5 UG; 5XD; INH
     Route: 055
     Dates: start: 20060707
  2. METHOTREXATE [Suspect]
     Indication: NEOPLASM MALIGNANT
  3. LOTENSIN [Concomitant]
  4. FUROSEMIDE [Concomitant]
  5. WARFARIN SODIUM [Concomitant]
  6. SPIRONOLACTONE [Concomitant]
  7. PRIMOSE OIL [Concomitant]
  8. ST. JOHN'S WORT [Concomitant]
  9. SILDENAFIL CITRATE [Concomitant]

REACTIONS (1)
  - GINGIVAL BLEEDING [None]
